FAERS Safety Report 19012410 (Version 1)
Quarter: 2021Q1

REPORT INFORMATION
  Report Type: Other
  Country: IT (occurrence: IT)
  Receive Date: 20210316
  Receipt Date: 20210316
  Transmission Date: 20210420
  Serious: Yes (Other)
  Sender: FDA-Public Use
  Company Number: IT-ROCHE-2784844

PATIENT

DRUGS (6)
  1. DOCETAXEL. [Suspect]
     Active Substance: DOCETAXEL
     Indication: HER2 POSITIVE BREAST CANCER
     Dosage: OVER 1 H ON DAYS 2 AND 9
     Route: 041
  2. METFORMIN [Suspect]
     Active Substance: METFORMIN HYDROCHLORIDE
     Indication: HER2 POSITIVE BREAST CANCER
     Dosage: CONTINUOUSLY ADMINISTERED ORALLY, STARTING 14 DAYS PRIOR TO THE BEGINNING OF THE FIRST CHEMOTHERAPY
     Route: 048
  3. TRASTUZUMAB. [Suspect]
     Active Substance: TRASTUZUMAB
     Dosage: 2 MG/KG/WEEK ON DAYS 2, 9, AND 16
     Route: 041
  4. LIPOSOMAL DOXORUBICIN [Suspect]
     Active Substance: DOXORUBICIN HYDROCHLORIDE
     Indication: HER2 POSITIVE BREAST CANCER
     Dosage: OVER 1 H ON DAY 1
     Route: 041
  5. TRASTUZUMAB. [Suspect]
     Active Substance: TRASTUZUMAB
     Indication: HER2 POSITIVE BREAST CANCER
     Dosage: LOADING DOSE AT DAY 2 OF THE FIRST CYCLE
     Route: 041
  6. METFORMIN [Suspect]
     Active Substance: METFORMIN HYDROCHLORIDE
     Dosage: CONTINUOUSLY ADMINISTERED ORALLY, STARTING 14 DAYS PRIOR TO THE BEGINNING OF THE FIRST CHEMOTHERAPY
     Route: 048

REACTIONS (20)
  - Syncope [Unknown]
  - Glaucoma [Unknown]
  - Vomiting [Unknown]
  - Deep vein thrombosis [Unknown]
  - Infection [Unknown]
  - Spinal pain [Unknown]
  - Leukopenia [Unknown]
  - Neutropenia [Unknown]
  - Anaemia [Unknown]
  - Diarrhoea [Unknown]
  - Hyperbilirubinaemia [Unknown]
  - Febrile neutropenia [Unknown]
  - Transaminases increased [Unknown]
  - Decreased appetite [Unknown]
  - Arrhythmia [Unknown]
  - Nausea [Unknown]
  - Hypokalaemia [Unknown]
  - Mucosal inflammation [Unknown]
  - Asthenia [Unknown]
  - Fatigue [Unknown]
